FAERS Safety Report 11175165 (Version 1)
Quarter: 2015Q2

REPORT INFORMATION
  Report Type: Spontaneous
  Country: US (occurrence: None)
  Receive Date: 20150608
  Receipt Date: 20150608
  Transmission Date: 20150821
  Serious: Yes (Other)
  Sender: FDA-Public Use
  Company Number: None

PATIENT
  Age: 53 Year
  Sex: Male
  Weight: 82.1 kg

DRUGS (7)
  1. CLONAZEPAM. [Concomitant]
     Active Substance: CLONAZEPAM
  2. BUPRENORPHINE/NALOXONE [Suspect]
     Active Substance: BUPRENORPHINE\NALOXONE
     Dosage: 20 MG WITH .5MG OF NALOXONE. TAKE 5 TABLETS PER DAY, TOTAL = 70 .14DAY SUPPLY, 5X PER DAY , DISSOLVE UNDER TONGUE.
     Route: 048
     Dates: start: 20101001
  3. BISACODYL. [Suspect]
     Active Substance: BISACODYL
  4. BUPRENORPHINE/NALOXONE [Concomitant]
     Active Substance: BUPRENORPHINE\NALOXONE
  5. CALCIUM [Concomitant]
     Active Substance: CALCIUM
  6. TERIPARATIDE [Concomitant]
     Active Substance: TERIPARATIDE
  7. METHOCARBAMOL. [Concomitant]
     Active Substance: METHOCARBAMOL

REACTIONS (5)
  - Skin exfoliation [None]
  - Skin atrophy [None]
  - Drug interaction [None]
  - Off label use [None]
  - Platelet count decreased [None]

NARRATIVE: CASE EVENT DATE: 20150213
